FAERS Safety Report 5743444-8 (Version None)
Quarter: 2008Q2

REPORT INFORMATION
  Report Type: 
  Country: None (occurrence: None)
  Receive Date: 20080519
  Receipt Date: 20080519
  Transmission Date: 20081010
  Serious: Yes (Death)
  Sender: FDA-Public Use
  Company Number: None

PATIENT
  Age: 85 Year
  Sex: Female
  Weight: 49.8957 kg

DRUGS (2)
  1. ACTAVAIS TOTOWA 'DIGITEK' MYLAN PHARMACEUTICALS [Suspect]
     Indication: ARRHYTHMIA
     Dosage: ONE TABLET ONCE A DAY PO
     Route: 048
     Dates: start: 20071029, end: 20080410
  2. ACTAVAIS TOTOWA 'DIGITEK' MYLAN PHARMACEUTICALS [Suspect]
     Indication: HEART RATE INCREASED
     Dosage: ONE TABLET ONCE A DAY PO
     Route: 048
     Dates: start: 20071029, end: 20080410

REACTIONS (2)
  - ADVERSE DRUG REACTION [None]
  - CARDIAC ARREST [None]
